FAERS Safety Report 9308937 (Version 1)
Quarter: 2013Q2

REPORT INFORMATION
  Report Type: Spontaneous
  Country: GB (occurrence: GB)
  Receive Date: 20130524
  Receipt Date: 20130524
  Transmission Date: 20140414
  Serious: Yes (Hospitalization, Other)
  Sender: FDA-Public Use
  Company Number: GB-ASTRAZENECA-2013SE32631

PATIENT
  Age: 60 Year
  Sex: Male
  Weight: 85 kg

DRUGS (3)
  1. ZOLADEX [Suspect]
     Indication: PROSTATE CANCER
     Route: 058
     Dates: start: 20130420
  2. SIMVASTATIN [Concomitant]
     Indication: BLOOD CHOLESTEROL INCREASED
     Route: 048
  3. ALLOPURINOL [Concomitant]
     Indication: GOUT
     Route: 048

REACTIONS (5)
  - Sleep disorder [Unknown]
  - Anxiety disorder [Unknown]
  - Suicidal ideation [Unknown]
  - Stress [Unknown]
  - Psychotic disorder [Not Recovered/Not Resolved]
